FAERS Safety Report 9753698 (Version 1)
Quarter: 2013Q4

REPORT INFORMATION
  Report Type: Spontaneous
  Country: US (occurrence: US)
  Receive Date: 20131213
  Receipt Date: 20131213
  Transmission Date: 20140711
  Serious: No
  Sender: FDA-Public Use
  Company Number: US-GILEAD-2010-0026518

PATIENT
  Sex: Female
  Weight: 65.32 kg

DRUGS (14)
  1. LETAIRIS [Suspect]
     Indication: PULMONARY ARTERIAL HYPERTENSION
     Route: 048
     Dates: start: 20100109
  2. FUROSEMIDE [Concomitant]
  3. VENTAVIS [Concomitant]
  4. MICARDIS [Concomitant]
  5. OXYCODONE-APAP [Concomitant]
  6. VITAMIN D [Concomitant]
  7. PLAQUENIL [Concomitant]
  8. ADVAIR [Concomitant]
  9. ALLOPURINOL [Concomitant]
  10. NADOL [Concomitant]
  11. TERAZOSIN [Concomitant]
  12. SPIRIVA [Concomitant]
  13. HCTZ [Concomitant]
  14. OXYGEN [Concomitant]

REACTIONS (1)
  - Dyspnoea [Unknown]
